FAERS Safety Report 6123054-3 (Version None)
Quarter: 2009Q1

REPORT INFORMATION
  Report Type: 
  Country: None (occurrence: None)
  Receive Date: 20090318
  Receipt Date: 20090304
  Transmission Date: 20090719
  Serious: Yes (Disabling, Other)
  Sender: FDA-Public Use
  Company Number: JP-PFIZER INC-2009168749

PATIENT

DRUGS (14)
  1. REVATIO [Suspect]
     Indication: PULMONARY HYPERTENSION
     Dosage: 5 MG, 4X/DAY
     Route: 048
     Dates: start: 20090105, end: 20090113
  2. MODACIN [Suspect]
     Indication: PNEUMONIA
     Dosage: 150 MG, 3X/DAY
     Route: 042
     Dates: start: 20081215, end: 20090113
  3. VICCILIN [Suspect]
     Indication: PNEUMONIA
     Dosage: 100 MG, 3X/DAY
     Route: 042
     Dates: start: 20081216, end: 20090113
  4. FLOLAN [Concomitant]
     Dosage: UNK
     Route: 042
     Dates: start: 20081210
  5. MORPHINE HYDROCHLORIDE [Concomitant]
     Dosage: UNK
     Route: 042
     Dates: start: 20081229
  6. MUSCULAX [Concomitant]
     Dosage: UNK
     Route: 042
     Dates: start: 20081209, end: 20090114
  7. AMINO ACIDS [Concomitant]
     Dosage: UNK
     Route: 042
     Dates: start: 20081216, end: 20090116
  8. MULTI-VITAMINS [Concomitant]
     Dosage: UNK
     Route: 042
     Dates: start: 20081219, end: 20090112
  9. ELEMENMIC [Concomitant]
     Dosage: UNK
     Route: 042
     Dates: start: 20081219, end: 20090112
  10. DOMININ [Concomitant]
     Dosage: UNK
     Route: 042
     Dates: start: 20081210, end: 20090113
  11. DOBUTAMINE [Concomitant]
     Dosage: UNK
     Route: 042
     Dates: start: 20081210, end: 20090122
  12. IMMUNOGLOBULIN HUMAN NORMAL/POLYETHYLENE GLYCOL [Concomitant]
     Dosage: UNK
     Route: 042
     Dates: start: 20090105, end: 20090105
  13. CEFMETAZOLE SODIUM [Concomitant]
     Dosage: UNK
     Route: 042
     Dates: start: 20081228, end: 20090104
  14. FOSMICIN S [Suspect]
     Dosage: UNK
     Route: 042
     Dates: start: 20081228, end: 20090104

REACTIONS (4)
  - ALANINE AMINOTRANSFERASE INCREASED [None]
  - ASPARTATE AMINOTRANSFERASE INCREASED [None]
  - BLOOD LACTATE DEHYDROGENASE INCREASED [None]
  - HEPATIC FUNCTION ABNORMAL [None]
